FAERS Safety Report 17066334 (Version 3)
Quarter: 2020Q4

REPORT INFORMATION
  Report Type: Spontaneous
  Country: PT (occurrence: PT)
  Receive Date: 20191122
  Receipt Date: 20201217
  Transmission Date: 20210113
  Serious: Yes (Other)
  Sender: FDA-Public Use
  Company Number: PT-MYLANLABS-2019M1112608

PATIENT
  Age: 19 Year
  Sex: Female

DRUGS (6)
  1. LEVOTHYROXINE SODIUM. [Suspect]
     Active Substance: LEVOTHYROXINE SODIUM
     Indication: HYPOTHYROIDISM
     Dosage: UNK, BID
     Route: 065
  2. BROMOCRIPTINE [Suspect]
     Active Substance: BROMOCRIPTINE
     Indication: PROLACTIN-PRODUCING PITUITARY TUMOUR
     Dosage: 20 MG, QD
     Route: 065
  3. CABERGOLINE. [Suspect]
     Active Substance: CABERGOLINE
     Indication: DOPAMINERGIC DRUG THERAPY
     Dosage: 5 MG, QW
     Route: 065
  4. DESMOPRESSIN [Concomitant]
     Active Substance: DESMOPRESSIN
     Indication: DIABETES INSIPIDUS
     Dosage: UNK
     Route: 065
  5. CABERGOLINE. [Suspect]
     Active Substance: CABERGOLINE
     Indication: PROLACTIN-PRODUCING PITUITARY TUMOUR
     Dosage: 5 MG, QW
     Route: 065
  6. BROMOCRIPTINE [Suspect]
     Active Substance: BROMOCRIPTINE
     Indication: DRUG HYPERSENSITIVITY
     Dosage: 20 MG, QD
     Route: 065

REACTIONS (5)
  - Drug ineffective [Recovering/Resolving]
  - Drug resistance [Recovering/Resolving]
  - Adrenocortical insufficiency acute [Recovering/Resolving]
  - Primary hyperthyroidism [Recovering/Resolving]
  - Treatment noncompliance [Recovering/Resolving]
